FAERS Safety Report 6300928-1 (Version None)
Quarter: 2009Q3

REPORT INFORMATION
  Report Type: 
  Country: None (occurrence: None)
  Receive Date: 20090806
  Receipt Date: 20090806
  Transmission Date: 20100115
  Serious: Yes (Life-Threatening, Other)
  Sender: FDA-Public Use
  Company Number: None

PATIENT
  Sex: Female
  Weight: 52.6173 kg

DRUGS (2)
  1. CITALOPRAM HYDROBROMIDE [Suspect]
     Indication: ANXIETY
     Dosage: TAKE 1 DAILY
     Dates: start: 20090724
  2. CITALOPRAM HYDROBROMIDE [Suspect]
     Indication: DEPRESSION
     Dosage: TAKE 1 DAILY
     Dates: start: 20090724

REACTIONS (10)
  - ABDOMINAL DISCOMFORT [None]
  - ASTHENIA [None]
  - DIARRHOEA [None]
  - DIZZINESS [None]
  - DYSPNOEA [None]
  - PHARYNGEAL OEDEMA [None]
  - PRODUCT SUBSTITUTION ISSUE [None]
  - SKIN BURNING SENSATION [None]
  - SWELLING [None]
  - URTICARIA [None]
